FAERS Safety Report 7112469-2 (Version None)
Quarter: 2010Q4

REPORT INFORMATION
  Report Type: 
  Country: None (occurrence: None)
  Receive Date: 20101119
  Receipt Date: 20101103
  Transmission Date: 20110411
  Serious: Yes (Hospitalization, Disabling, Other)
  Sender: FDA-Public Use
  Company Number: BR-BAYER-201016962LA

PATIENT
  Age: 20 Year
  Sex: Female
  Weight: 55 kg

DRUGS (1)
  1. YAZ [Suspect]
     Indication: PRODUCT USED FOR UNKNOWN INDICATION
     Route: 048
     Dates: start: 20090301, end: 20091201

REACTIONS (14)
  - BLINDNESS [None]
  - CAVERNOUS SINUS THROMBOSIS [None]
  - EXTRAOCULAR MUSCLE PARESIS [None]
  - FATIGUE [None]
  - HEADACHE [None]
  - INTRACRANIAL PRESSURE INCREASED [None]
  - MALAISE [None]
  - NAUSEA [None]
  - NECK PAIN [None]
  - OPTIC NERVE INJURY [None]
  - PAPILLOEDEMA [None]
  - STRABISMUS [None]
  - VISUAL ACUITY REDUCED [None]
  - VOMITING [None]
